FAERS Safety Report 9708411 (Version 2)
Quarter: 2013Q4

REPORT INFORMATION
  Report Type: Spontaneous
  Country: US (occurrence: US)
  Receive Date: 20131125
  Receipt Date: 20131125
  Transmission Date: 20140711
  Serious: Yes (Other)
  Sender: FDA-Public Use
  Company Number: US-GILEAD-2013-0080201

PATIENT
  Sex: Male

DRUGS (1)
  1. LETAIRIS [Suspect]
     Indication: PULMONARY ARTERIAL HYPERTENSION
     Dosage: 5 MG, QD
     Dates: start: 20121026

REACTIONS (6)
  - Hypoxia [Unknown]
  - Aortic valve replacement [Unknown]
  - Local swelling [Unknown]
  - Local swelling [Unknown]
  - Nasal congestion [Unknown]
  - No therapeutic response [Unknown]
